FAERS Safety Report 4411847-X (Version None)
Quarter: 2004Q3

REPORT INFORMATION
  Report Type: 
  Country: None (occurrence: None)
  Receive Date: 20040730
  Receipt Date: 20040607
  Transmission Date: 20050211
  Serious: No
  Sender: FDA-Public Use
  Company Number: US-GLAXOSMITHKLINE-A0513633A

PATIENT
  Age: 56 Year
  Sex: Female

DRUGS (7)
  1. VENTOLIN [Suspect]
     Indication: ASTHMA
     Dosage: 2PUFF TWICE PER DAY
     Route: 055
     Dates: start: 20040401, end: 20040401
  2. CELEBREX [Concomitant]
  3. NASACORT AQ [Concomitant]
  4. PRILOSEC [Concomitant]
  5. ACCOLATE [Concomitant]
  6. ZYRTEC [Concomitant]
  7. IMITREX [Concomitant]

REACTIONS (5)
  - CHEST DISCOMFORT [None]
  - PAIN IN EXTREMITY [None]
  - THROAT TIGHTNESS [None]
  - VISUAL DISTURBANCE [None]
  - WHEEZING [None]
